FAERS Safety Report 9686260 (Version 2)
Quarter: 2013Q4

REPORT INFORMATION
  Report Type: Spontaneous
  Country: GB (occurrence: GB)
  Receive Date: 20131113
  Receipt Date: 20131122
  Transmission Date: 20140711
  Serious: Yes (Hospitalization, Other)
  Sender: FDA-Public Use
  Company Number: GB-WATSON-2013-20774

PATIENT
  Age: 19 Year
  Sex: Male

DRUGS (3)
  1. BACLOFEN (UNKNOWN) [Suspect]
     Indication: PRODUCT USED FOR UNKNOWN INDICATION
     Dosage: 345 UG, DAILY
     Route: 037
  2. BACLOFEN (UNKNOWN) [Suspect]
     Dosage: UNK
     Route: 037
  3. BACLOFEN (UNKNOWN) [Suspect]
     Dosage: UNK
     Route: 048

REACTIONS (4)
  - Hypertonia [Recovering/Resolving]
  - Muscle spasticity [Unknown]
  - Adverse drug reaction [Unknown]
  - Drug withdrawal syndrome [Unknown]
